FAERS Safety Report 23144985 (Version 1)
Quarter: 2023Q4

REPORT INFORMATION
  Report Type: Spontaneous
  Country: CN (occurrence: CN)
  Receive Date: 20231103
  Receipt Date: 20231103
  Transmission Date: 20240110
  Serious: Yes (Hospitalization, Other)
  Sender: FDA-Public Use
  Company Number: CN-PFIZER INC-PV202300178064

PATIENT
  Age: 52 Year
  Sex: Female
  Weight: 55 kg

DRUGS (2)
  1. METHYLPREDNISOLONE [Suspect]
     Active Substance: METHYLPREDNISOLONE
     Indication: Therapeutic procedure
     Dosage: 18 MG, 1X/DAY
     Route: 048
     Dates: start: 20230724, end: 20230928
  2. MYCOPHENOLATE MOFETIL [Suspect]
     Active Substance: MYCOPHENOLATE MOFETIL
     Indication: Therapeutic procedure
     Dosage: 0.75 G, 2X/DAY
     Route: 048
     Dates: start: 20230815, end: 20230824

REACTIONS (3)
  - Respiratory tract infection fungal [Recovering/Resolving]
  - Candida pneumonia [Recovering/Resolving]
  - Emphysema [Recovering/Resolving]

NARRATIVE: CASE EVENT DATE: 20230922
